FAERS Safety Report 9068710 (Version 1)
Quarter: 2013Q1

REPORT INFORMATION
  Report Type: Spontaneous
  Country: US (occurrence: None)
  Receive Date: 20130212
  Receipt Date: 20130212
  Transmission Date: 20140127
  Serious: No
  Sender: FDA-Public Use
  Company Number: None

PATIENT
  Age: 58 Year
  Sex: Female
  Weight: 56.7 kg

DRUGS (1)
  1. LISINOPRIL [Suspect]
     Route: 048
     Dates: start: 201212, end: 201301

REACTIONS (5)
  - Blood pressure increased [None]
  - Confusional state [None]
  - Nausea [None]
  - Heart rate increased [None]
  - Product quality issue [None]
